FAERS Safety Report 9570201 (Version 2)
Quarter: 2013Q3

REPORT INFORMATION
  Report Type: Spontaneous
  Country: US (occurrence: US)
  Receive Date: 20130930
  Receipt Date: 20130930
  Transmission Date: 20140515
  Serious: Yes (Life-Threatening, Other)
  Sender: FDA-Public Use
  Company Number: US-AMGEN-USASP2012067644

PATIENT
  Age: 56 Year
  Sex: Female
  Weight: 83.9 kg

DRUGS (11)
  1. ENBREL [Suspect]
     Indication: RHEUMATOID ARTHRITIS
     Dosage: 50 MG, QWK
     Route: 058
  2. ADVIL                              /00044201/ [Concomitant]
     Dosage: 200 MG, UNK
  3. TYLENOL ARTHRITIS [Concomitant]
     Dosage: 650 MG, UNK
  4. METHOTREXATE [Concomitant]
     Dosage: 2.5 MG, UNK
  5. LEXAPRO [Concomitant]
     Dosage: 5 MG, UNK
  6. FOLIC ACID [Concomitant]
     Dosage: 1 MG, UNK
  7. MULTIVITAMIN                       /07504101/ [Concomitant]
     Dosage: UNK
  8. CALCIUM + VIT D [Concomitant]
     Dosage: UNK
  9. NEXIUM                             /01479302/ [Concomitant]
     Dosage: 20 MG, UNK
  10. LOSARTAN POTASICO [Concomitant]
     Dosage: 25 MG, UNK
  11. COZAAR [Concomitant]
     Dosage: 25 MG, UNK

REACTIONS (4)
  - Lung infection [Recovered/Resolved]
  - Injection site bruising [Recovered/Resolved]
  - Injection site erythema [Unknown]
  - Injection site rash [Unknown]
